FAERS Safety Report 7685180-7 (Version None)
Quarter: 2011Q3

REPORT INFORMATION
  Report Type: 
  Country: None (occurrence: None)
  Receive Date: 20110816
  Receipt Date: 20110805
  Transmission Date: 20111222
  Serious: Yes (Disabling)
  Sender: FDA-Public Use
  Company Number: GB-NOVOPROD-333155

PATIENT

DRUGS (6)
  1. GLICLAZIDE [Concomitant]
  2. SIMAVASTATIN [Concomitant]
  3. VICTOZA [Suspect]
     Indication: DIABETES MELLITUS
     Dosage: 1.2 MG, UNK
     Route: 058
     Dates: start: 20101101
  4. METFORMIN HCL [Concomitant]
  5. LISINOPRIL [Concomitant]
  6. SITAGLIPTIN [Suspect]
     Indication: DIABETES MELLITUS INADEQUATE CONTROL
     Dosage: 100 MG, UNK
     Route: 048
     Dates: start: 20091118, end: 20101101

REACTIONS (3)
  - NEPHROPATHY TOXIC [None]
  - DIPLOPIA [None]
  - MYASTHENIA GRAVIS [None]
